FAERS Safety Report 21238521 (Version 5)
Quarter: 2022Q4

REPORT INFORMATION
  Report Type: Report from Study
  Country: JP (occurrence: None)
  Receive Date: 20220822
  Receipt Date: 20221206
  Transmission Date: 20230113
  Serious: Yes (Hospitalization)
  Sender: FDA-Public Use
  Company Number: JP-ROCHE-3159467

PATIENT
  Age: 77 Year
  Sex: Female
  Weight: 69 kg

DRUGS (8)
  1. ATEZOLIZUMAB [Suspect]
     Active Substance: ATEZOLIZUMAB
     Indication: Triple negative breast cancer
     Dosage: 840 MG EVERY 2 WEEKS, FOR 10 DOSES THEN MAINTENANCE WILL BE ADMINISTERED BY IV, 1200 MG EVERY 3 WEEK
     Route: 041
     Dates: start: 20210827
  2. PACLITAXEL [Suspect]
     Active Substance: PACLITAXEL
     Indication: Triple negative breast cancer
     Dosage: ON 18/NOV/2021, SHE HAD MOST RECENT DOSE OF PACLITAXEL PRIOR TO AE AND SAE ONSET AND LAST DOSE PRIOR
     Route: 042
     Dates: start: 20210827
  3. DOXORUBICIN [Suspect]
     Active Substance: DOXORUBICIN
     Indication: Triple negative breast cancer
     Dosage: ON 04/JAN/2022, SHE HAD MOST RECENT DOSE OF DOXORUBICIN PRIOR TO AE AND SAE ONSET AND LAST DOSE PRIO
     Route: 042
     Dates: start: 20211126
  4. CYCLOPHOSPHAMIDE [Suspect]
     Active Substance: CYCLOPHOSPHAMIDE
     Indication: Triple negative breast cancer
     Dosage: ON 04/JAN/2022, SHE HAD MOST RECENT DOSE OF CYCLOPHOSPHAMIDE PRIOR TO AE AND SAE ONSET AND LAST DOSE
     Route: 042
     Dates: start: 20211126
  5. PEGFILGRASTIM [Suspect]
     Active Substance: PEGFILGRASTIM
     Indication: Triple negative breast cancer
     Dosage: CYCLE 4 VISIT 1
     Route: 058
     Dates: start: 20211128, end: 20211128
  6. PEGFILGRASTIM [Suspect]
     Active Substance: PEGFILGRASTIM
     Dosage: CYCLE 4 VISIT 2
     Route: 058
     Dates: start: 20211210, end: 20211210
  7. PEGFILGRASTIM [Suspect]
     Active Substance: PEGFILGRASTIM
     Dosage: CYCLE 5 VISIT 1
     Route: 058
     Dates: start: 20211224, end: 20211224
  8. PEGFILGRASTIM [Suspect]
     Active Substance: PEGFILGRASTIM
     Dosage: CYCLE 5 VISIT 2
     Route: 058
     Dates: start: 20220106, end: 20220106

REACTIONS (1)
  - Pneumonitis [Not Recovered/Not Resolved]

NARRATIVE: CASE EVENT DATE: 20220802
